FAERS Safety Report 8663021 (Version 2)
Quarter: 2013Q1

REPORT INFORMATION
  Report Type: Spontaneous
  Country: US (occurrence: US)
  Receive Date: 20120712
  Receipt Date: 20130125
  Transmission Date: 20140127
  Serious: Yes (Hospitalization, Other)
  Sender: FDA-Public Use
  Company Number: US-BAYER-2012-069078

PATIENT
  Age: 26 Year
  Sex: Female
  Weight: 68 kg

DRUGS (14)
  1. YAZ [Suspect]
     Indication: CONTRACEPTION
     Dosage: UNK
     Dates: start: 200801, end: 200910
  2. YAZ [Suspect]
     Indication: CONTRACEPTION
     Dosage: UNK
     Dates: start: 201007
  3. YASMIN [Suspect]
     Indication: CONTRACEPTION
     Dosage: UNK
     Dates: start: 200801, end: 200910
  4. YASMIN [Suspect]
     Indication: CONTRACEPTION
     Dosage: UNK
     Dates: start: 201007
  5. CYMBALTA [Concomitant]
     Indication: DEPRESSION
     Dosage: UNK
     Dates: start: 200801, end: 200910
  6. CYMBALTA [Concomitant]
     Indication: DEPRESSION
     Dosage: UNK
     Dates: start: 201007
  7. POTASSIUM CHLORIDE [Concomitant]
     Indication: HYPOKALAEMIA
     Dosage: 8 MEQ, DAILY
     Route: 048
  8. FERROUS SULFATE [Concomitant]
     Indication: BLOOD IRON DECREASED
     Dosage: 325 MG, DAILY
     Route: 048
  9. PROZAC [Concomitant]
     Indication: DEPRESSION
     Dosage: 40 MG, DAILY
     Route: 048
  10. HYDROCODONE W/ACETAMINOPHEN [Concomitant]
     Indication: PAIN
     Dosage: UNK, AS NEEDED
     Route: 048
  11. NAPROXEN [Concomitant]
     Dosage: UNK, TWICE A DAY WITH FOOD
     Route: 048
  12. PRENATAL VITAMINS [Concomitant]
  13. ACYCLOVIR [ACICLOVIR] [Concomitant]
     Dosage: 400 MG, BID
  14. XANAX [Concomitant]

REACTIONS (11)
  - Cholelithiasis [None]
  - Cholecystitis chronic [None]
  - Injury [None]
  - Dyspepsia [None]
  - Chest pain [None]
  - Dyspnoea [None]
  - Abdominal pain upper [None]
  - Depression [None]
  - Emotional distress [None]
  - Fear of death [None]
  - Nervousness [None]
